FAERS Safety Report 8914913 (Version 4)
Quarter: 2015Q1

REPORT INFORMATION
  Report Type: Spontaneous
  Country: US (occurrence: US)
  Receive Date: 20121116
  Receipt Date: 20150227
  Transmission Date: 20150721
  Serious: Yes (Other)
  Sender: FDA-Public Use
  Company Number: US-ASTRAZENECA-2012SE71650

PATIENT
  Age: 69 Year
  Sex: Female

DRUGS (33)
  1. SYMBICORT [Suspect]
     Active Substance: BUDESONIDE\FORMOTEROL FUMARATE DIHYDRATE
     Indication: MULTIPLE ALLERGIES
     Dosage: 160/4.5 MCG, FOUR PUFFS DAILY
     Route: 055
  2. PLAVIX [Suspect]
     Active Substance: CLOPIDOGREL BISULFATE
     Route: 048
  3. COREG [Concomitant]
     Active Substance: CARVEDILOL
  4. ASPIRIN. [Concomitant]
     Active Substance: ASPIRIN
  5. MACRODANTIN [Concomitant]
     Active Substance: NITROFURANTOIN
  6. TRAMADOL [Concomitant]
     Active Substance: TRAMADOL
     Indication: ARTHRALGIA
  7. PHENOMENA SHOT [Concomitant]
     Dates: start: 20090225
  8. TYLENOL [Concomitant]
     Active Substance: ACETAMINOPHEN
     Indication: ARTHRITIS
     Route: 048
  9. SYMBICORT [Suspect]
     Active Substance: BUDESONIDE\FORMOTEROL FUMARATE DIHYDRATE
     Indication: MULTIPLE ALLERGIES
     Dosage: 160/4.5 MCG UNK
     Route: 055
  10. SYMBICORT [Suspect]
     Active Substance: BUDESONIDE\FORMOTEROL FUMARATE DIHYDRATE
     Indication: ASTHMA
     Dosage: 160/4.5 MCG, FOUR PUFFS DAILY
     Route: 055
  11. NORVASC [Concomitant]
     Active Substance: AMLODIPINE BESYLATE
  12. SYMBICORT [Suspect]
     Active Substance: BUDESONIDE\FORMOTEROL FUMARATE DIHYDRATE
     Indication: ASTHMA
     Dosage: 160/4.5 MCG UNK
     Route: 055
  13. TYLANOL [Concomitant]
     Indication: ARTHRITIS
     Dosage: SIX PILLS DAILY, 650MG
  14. COZAAR [Concomitant]
     Active Substance: LOSARTAN POTASSIUM
  15. NITROQUICK [Concomitant]
     Active Substance: NITROGLYCERIN
     Dosage: 0.4 AS DIRECTED AND NEEDED
  16. FLONACE [Concomitant]
     Dosage: 2 PUFFS DAILY
  17. H1N1 FLU SHOT [Concomitant]
     Active Substance: INFLUENZA VIRUS VACCINE
     Dates: start: 20111003
  18. CITALOPRAM [Concomitant]
     Active Substance: CITALOPRAM HYDROBROMIDE
  19. TRAMADOL [Concomitant]
     Active Substance: TRAMADOL
     Indication: ARTHRALGIA
  20. ALPRAZOLAM. [Concomitant]
     Active Substance: ALPRAZOLAM
     Indication: BARRETT^S OESOPHAGUS
     Dates: start: 2010
  21. METOPROLOL [Suspect]
     Active Substance: METOPROLOL
     Route: 048
  22. SYMBICORT [Suspect]
     Active Substance: BUDESONIDE\FORMOTEROL FUMARATE DIHYDRATE
     Indication: ASTHMA
     Dosage: 160/4.5 MCG, TWO PUFFS, DAILY
     Route: 055
     Dates: start: 2013
  23. DIOVAN [Suspect]
     Active Substance: VALSARTAN
     Route: 048
  24. IRON [Concomitant]
     Active Substance: IRON
  25. ESRADIOL [Concomitant]
     Indication: MENOPAUSE
     Dates: start: 2009
  26. SYMBICORT [Suspect]
     Active Substance: BUDESONIDE\FORMOTEROL FUMARATE DIHYDRATE
     Indication: MULTIPLE ALLERGIES
     Dosage: 160/4.5 MCG, TWO PUFFS, DAILY
     Route: 055
     Dates: start: 2013
  27. ZOLPIDEM [Concomitant]
     Active Substance: ZOLPIDEM\ZOLPIDEM TARTRATE
     Indication: SLEEP DISORDER
     Route: 048
     Dates: start: 201406
  28. H1N1 FLU SHOT [Concomitant]
     Active Substance: INFLUENZA VIRUS VACCINE
     Dates: start: 20091218
  29. MAXZIDE [Concomitant]
     Active Substance: HYDROCHLOROTHIAZIDE\TRIAMTERENE
     Dosage: 75-50 1 TABLET DAILY
  30. PANTOPRAZOLE [Concomitant]
     Active Substance: PANTOPRAZOLE SODIUM
  31. ALLEGRA-D [Concomitant]
     Active Substance: FEXOFENADINE\PSEUDOEPHEDRINE
  32. 3 IN ONE FLUE SHOT [Concomitant]
     Dates: start: 20101027
  33. NITRO [Concomitant]
     Active Substance: NITROGLYCERIN
     Dosage: AS REQUIRED
     Route: 060

REACTIONS (10)
  - Myocardial infarction [Unknown]
  - Cataract [Unknown]
  - Pruritus [Unknown]
  - Intentional product misuse [Unknown]
  - Carpal tunnel syndrome [Unknown]
  - Dizziness [Unknown]
  - Adverse event [Unknown]
  - Dyspnoea [Unknown]
  - Bronchitis [Recovered/Resolved]
  - Drug effect decreased [Unknown]

NARRATIVE: CASE EVENT DATE: 2013
